FAERS Safety Report 9880525 (Version 5)
Quarter: 2014Q1

REPORT INFORMATION
  Report Type: Spontaneous
  Country: US (occurrence: US)
  Receive Date: 20140207
  Receipt Date: 20140312
  Transmission Date: 20141002
  Serious: Yes (Hospitalization)
  Sender: FDA-Public Use
  Company Number: US-JNJFOC-20140200083

PATIENT
  Age: 34 Year
  Sex: Male
  Weight: 170.2 kg

DRUGS (7)
  1. XARELTO [Suspect]
     Indication: DEEP VEIN THROMBOSIS
     Route: 048
     Dates: start: 20131206
  2. XARELTO [Suspect]
     Indication: DEEP VEIN THROMBOSIS
     Route: 048
     Dates: end: 20140111
  3. XARELTO [Suspect]
     Indication: PULMONARY EMBOLISM
     Route: 048
     Dates: end: 20140111
  4. XARELTO [Suspect]
     Indication: PULMONARY EMBOLISM
     Route: 048
     Dates: start: 20131206
  5. COUMADIN [Suspect]
     Indication: ANTIPLATELET THERAPY
     Route: 065
     Dates: start: 2013, end: 20131206
  6. NORTREL [Concomitant]
     Route: 065
     Dates: start: 20131204
  7. DIAZEPAM [Concomitant]
     Route: 048
     Dates: start: 20131204

REACTIONS (2)
  - Haemothorax [Recovered/Resolved]
  - Haemoglobin decreased [Unknown]
